FAERS Safety Report 9535924 (Version 1)
Quarter: 2013Q2

REPORT INFORMATION
  Report Type: Spontaneous
  Country: US (occurrence: None)
  Receive Date: 20130507
  Receipt Date: 20130507
  Transmission Date: 20140414
  Serious: Yes (Other)
  Sender: FDA-Public Use
  Company Number: PHEH2012US024379

PATIENT
  Sex: 0

DRUGS (1)
  1. AFINITOR ( RAD) UNKNOWN [Suspect]
     Indication: BREAST CANCER METASTATIC

REACTIONS (2)
  - Oral pain [None]
  - Dysphagia [None]
